FAERS Safety Report 6812579-0 (Version None)
Quarter: 2010Q3

REPORT INFORMATION
  Report Type: 
  Country: None (occurrence: None)
  Receive Date: 20100701
  Receipt Date: 20100621
  Transmission Date: 20110219
  Serious: Yes (Other)
  Sender: FDA-Public Use
  Company Number: VE-PFIZER INC-2010078178

PATIENT
  Age: 69 Year
  Sex: Female

DRUGS (4)
  1. TAFIL [Suspect]
     Indication: INSOMNIA
     Dosage: 1 MG, 2X/DAY
     Route: 048
     Dates: start: 20050101, end: 20100101
  2. ATIVAN [Concomitant]
     Indication: INSOMNIA
     Dosage: 2 MG, 2X/DAY
     Dates: start: 20040101
  3. CORASPIN [Concomitant]
     Indication: ARRHYTHMIA
     Dosage: 81 MG, 2X/DAY
     Route: 048
     Dates: start: 20040101
  4. ENALAPRIL [Concomitant]
     Indication: HYPERTENSION
     Dosage: 20 MG, 1X/DAY
     Route: 048
     Dates: start: 20040101

REACTIONS (1)
  - SCHIZOPHRENIA [None]
